FAERS Safety Report 15479477 (Version 2)
Quarter: 2018Q4

REPORT INFORMATION
  Report Type: Spontaneous
  Country: US (occurrence: US)
  Receive Date: 20181009
  Receipt Date: 20181012
  Transmission Date: 20190205
  Serious: Yes (Other)
  Sender: FDA-Public Use
  Company Number: US-PFIZER INC-2018403743

PATIENT
  Sex: Female

DRUGS (1)
  1. TOVIAZ [Suspect]
     Active Substance: FESOTERODINE FUMARATE
     Dosage: UNK

REACTIONS (5)
  - Dizziness [Unknown]
  - Pain [Unknown]
  - Loss of consciousness [Unknown]
  - Blood pressure decreased [Unknown]
  - Syncope [Unknown]
